FAERS Safety Report 12383603 (Version 1)
Quarter: 2016Q2

REPORT INFORMATION
  Report Type: Spontaneous
  Country: IT (occurrence: IT)
  Receive Date: 20160518
  Receipt Date: 20160518
  Transmission Date: 20160815
  Serious: Yes (Hospitalization)
  Sender: FDA-Public Use
  Company Number: IT-UCBSA-2016017870

PATIENT
  Age: 56 Year
  Sex: Male

DRUGS (3)
  1. NEUPRO [Suspect]
     Active Substance: ROTIGOTINE
     Indication: PARKINSON^S DISEASE
     Dosage: 8 MG/24 HOURS TRANSDERMAL PATCH, AT A DAILY DOSE OF 16 MG
     Route: 062
     Dates: start: 20120316, end: 20160129
  2. JUMEX [Concomitant]
     Active Substance: SELEGILINE HYDROCHLORIDE
     Indication: PRODUCT USED FOR UNKNOWN INDICATION
     Dosage: UNK
  3. SIRIO [Concomitant]
     Active Substance: CARBIDOPA\MELEVODOPA
     Indication: PRODUCT USED FOR UNKNOWN INDICATION
     Dosage: UNK

REACTIONS (6)
  - Somnolence [Recovering/Resolving]
  - Abnormal weight gain [Recovering/Resolving]
  - Erectile dysfunction [Recovering/Resolving]
  - Binge eating [Recovering/Resolving]
  - Micturition urgency [Recovering/Resolving]
  - Compulsive hoarding [Recovering/Resolving]

NARRATIVE: CASE EVENT DATE: 20130101
